FAERS Safety Report 25108535 (Version 1)
Quarter: 2025Q1

REPORT INFORMATION
  Report Type: Spontaneous
  Country: BE (occurrence: BE)
  Receive Date: 20250322
  Receipt Date: 20250322
  Transmission Date: 20250409
  Serious: Yes (Hospitalization)
  Sender: Kenvue
  Company Number: None

PATIENT

DRUGS (1)
  1. ACETAMINOPHEN [Suspect]
     Active Substance: ACETAMINOPHEN
     Indication: Intentional self-injury
     Route: 048

REACTIONS (3)
  - Vomiting [Not Recovered/Not Resolved]
  - Intentional overdose [Not Recovered/Not Resolved]
  - Product use issue [Not Recovered/Not Resolved]
